FAERS Safety Report 7290367-1 (Version None)
Quarter: 2011Q1

REPORT INFORMATION
  Report Type: 
  Country: None (occurrence: None)
  Receive Date: 20110214
  Receipt Date: 20110204
  Transmission Date: 20110831
  Serious: Yes (Other)
  Sender: FDA-Public Use
  Company Number: JP-ASTRAZENECA-2011SE06717

PATIENT
  Age: 54 Year
  Sex: Male

DRUGS (4)
  1. AMLODIN OD [Suspect]
     Route: 048
  2. CRESTOR [Suspect]
     Indication: HYPERCHOLESTEROLAEMIA
     Route: 048
     Dates: start: 20101215, end: 20110203
  3. ACINON [Suspect]
     Route: 048
  4. MUCOSTA [Suspect]
     Route: 048

REACTIONS (1)
  - PLATELET COUNT DECREASED [None]
